FAERS Safety Report 16101564 (Version 1)
Quarter: 2019Q1

REPORT INFORMATION
  Report Type: Spontaneous
  Country: US (occurrence: US)
  Receive Date: 20190321
  Receipt Date: 20190321
  Transmission Date: 20190418
  Serious: No
  Sender: FDA-Public Use
  Company Number: US-BAUSCH-BL-2019-008304

PATIENT
  Sex: Male

DRUGS (1)
  1. MOVIPREP [Suspect]
     Active Substance: ASCORBIC ACID\POLYETHYLENE GLYCOL 3350\POTASSIUM CHLORIDE\SODIUM ASCORBATE\SODIUM CHLORIDE\SODIUM SULFATE
     Indication: BOWEL PREPARATION
     Dosage: FIRST OF TWO DOSES BETWEEN 18.00 AND 19.30
     Route: 065

REACTIONS (3)
  - Insomnia [Not Recovered/Not Resolved]
  - Patient dissatisfaction with treatment [Unknown]
  - Frequent bowel movements [Not Recovered/Not Resolved]
